FAERS Safety Report 10143611 (Version 2)
Quarter: 2014Q2

REPORT INFORMATION
  Report Type: Spontaneous
  Country: US (occurrence: US)
  Receive Date: 20140430
  Receipt Date: 20140606
  Transmission Date: 20141212
  Serious: No
  Sender: FDA-Public Use
  Company Number: US-PFIZER INC-2014116643

PATIENT
  Age: 60 Year
  Sex: Female
  Weight: 49.89 kg

DRUGS (5)
  1. LYRICA [Suspect]
     Indication: NEUROPATHY PERIPHERAL
     Dosage: 25 MG, 2X/DAY
     Dates: start: 201310
  2. LYRICA [Suspect]
     Dosage: 50 MG (2 CAPSULES OF 25 MG), 2X/DAY
     Dates: start: 2013
  3. LYRICA [Suspect]
     Dosage: 50 MG, 3X/DAY
     Dates: end: 201405
  4. TRAZODONE [Concomitant]
     Indication: ANXIETY
     Dosage: 60 MG, DAILY
  5. HYDREA [Concomitant]
     Indication: POLYCYTHAEMIA VERA
     Dosage: 500 MG, ALTERNATE DAY

REACTIONS (5)
  - Drug effect incomplete [Unknown]
  - Pain in extremity [Unknown]
  - Pain [Unknown]
  - Burning sensation [Unknown]
  - Feeling abnormal [Unknown]
